FAERS Safety Report 16078900 (Version 6)
Quarter: 2020Q1

REPORT INFORMATION
  Report Type: Spontaneous
  Country: CA (occurrence: CA)
  Receive Date: 20190315
  Receipt Date: 20200213
  Transmission Date: 20200409
  Serious: Yes (Life-Threatening, Hospitalization, Other)
  Sender: FDA-Public Use
  Company Number: CA-PFIZER INC-2017237830

PATIENT
  Age: 69 Year
  Sex: Female
  Weight: 81 kg

DRUGS (20)
  1. IBRANCE [Suspect]
     Active Substance: PALBOCICLIB
     Dosage: 125 MG, CYCLIC (3 WEEKS ON AND 1 WEEK OFF)
     Route: 048
     Dates: end: 201912
  2. FENOFIBRATE. [Concomitant]
     Active Substance: FENOFIBRATE
     Dosage: 145 MG, UNK
  3. VITAMIN D [Concomitant]
     Active Substance: VITAMIN D NOS
     Dosage: UNK
  4. ZOLEDRONIC ACID [Concomitant]
     Active Substance: ZOLEDRONIC ACID
     Dosage: UNK (EVERY 4 WEEKS)
  5. FEMARA [Concomitant]
     Active Substance: LETROZOLE
     Dosage: UNK
  6. FENOFIBRATE. [Concomitant]
     Active Substance: FENOFIBRATE
     Dosage: 48 MG, DAILY
     Route: 048
  7. ZOLEDRONIC ACID [Concomitant]
     Active Substance: ZOLEDRONIC ACID
     Dosage: UNK (EVERY 6 WEEKS)
  8. WARFARIN [Concomitant]
     Active Substance: WARFARIN
     Dosage: 10 MG, DAILY
     Route: 048
     Dates: start: 20190219, end: 20190220
  9. PAROXETINE. [Concomitant]
     Active Substance: PAROXETINE
     Dosage: 20 MG, DAILY
  10. ACETAMINOPHEN. [Concomitant]
     Active Substance: ACETAMINOPHEN
     Dosage: UNK, AS NEEDED (325-650 MG, AS NEEDED Q4H)
  11. IBRANCE [Suspect]
     Active Substance: PALBOCICLIB
     Dosage: 125 MG, CYCLIC (3 WEEKS ON AND 1 WEEK OFF)
     Route: 048
     Dates: start: 20170718, end: 201902
  12. WARFARIN [Concomitant]
     Active Substance: WARFARIN
     Dosage: 5 MG, DAILY (MONDAY, WEDNESDAY, FRIDAY)
     Dates: start: 2015
  13. WARFARIN [Concomitant]
     Active Substance: WARFARIN
     Dosage: 4 MG DAILY
  14. MAGNESIUM [Concomitant]
     Active Substance: MAGNESIUM
     Dosage: 420 MG, DAILY
  15. IBRANCE [Suspect]
     Active Substance: PALBOCICLIB
     Indication: BREAST CANCER METASTATIC
     Dosage: 125 MG, CYCLIC (3 WEEKS ON AND 1 WEEK OFF)
     Route: 048
     Dates: start: 20170607, end: 2017
  16. CLONAZEPAM. [Concomitant]
     Active Substance: CLONAZEPAM
     Dosage: 0.5 MG, 2X/DAY
  17. CALCIUM [Concomitant]
     Active Substance: CALCIUM
     Dosage: UNK
  18. FRAGMIN [Concomitant]
     Active Substance: DALTEPARIN SODIUM
     Dosage: UNK
  19. LETROZOLE. [Concomitant]
     Active Substance: LETROZOLE
     Indication: BREAST CANCER METASTATIC
     Dosage: 2.5 MG, 1X/DAY
     Route: 048
     Dates: start: 201706
  20. WARFARIN [Concomitant]
     Active Substance: WARFARIN
     Indication: VENOUS OCCLUSION
     Dosage: 6 MG, DAILY (TUESDAY, THURSDAY, SATURDAY AND SUNDAY)
     Dates: start: 2015

REACTIONS (22)
  - Pneumonia streptococcal [Unknown]
  - Urinary retention [Recovered/Resolved]
  - Weight increased [Unknown]
  - Alopecia [Unknown]
  - Cough [Unknown]
  - Lymphadenopathy [Unknown]
  - Fall [Unknown]
  - Hypokalaemia [Recovered/Resolved]
  - Blood pressure increased [Unknown]
  - Lethargy [Unknown]
  - Dysphagia [Recovered/Resolved]
  - Respiratory failure [Unknown]
  - Bacteraemia [Unknown]
  - Delirium [Recovering/Resolving]
  - Haemoptysis [Recovered/Resolved]
  - Hyponatraemia [Recovered/Resolved]
  - Acute kidney injury [Recovered/Resolved]
  - Bronchitis [Unknown]
  - Hypophagia [Unknown]
  - Agitation [Unknown]
  - Neoplasm progression [Unknown]
  - Confusional state [Unknown]
